FAERS Safety Report 25904998 (Version 2)
Quarter: 2025Q4

REPORT INFORMATION
  Report Type: Spontaneous
  Country: CA (occurrence: CA)
  Receive Date: 20251010
  Receipt Date: 20251025
  Transmission Date: 20260118
  Serious: Yes (Other)
  Sender: CELLTRION
  Company Number: CA-CELLTRION INC.-2025CA035870

PATIENT

DRUGS (9)
  1. STEQEYMA [Suspect]
     Active Substance: USTEKINUMAB-STBA
     Indication: Crohn^s disease
     Dosage: 390 MG (LOADING)
     Route: 042
     Dates: start: 202509
  2. STEQEYMA [Suspect]
     Active Substance: USTEKINUMAB-STBA
     Indication: Crohn^s disease
     Dosage: 90 MG (SC) EVERY 8 WEEKS
     Route: 058
  3. PANTOPRAZOLE [Concomitant]
     Active Substance: PANTOPRAZOLE
     Dosage: 5 MG
     Dates: start: 202505
  4. RANITIDINE [Concomitant]
     Active Substance: RANITIDINE
     Dosage: 150 MG
     Dates: start: 202506
  5. PAROXETINE [Concomitant]
     Active Substance: PAROXETINE
     Dosage: 30 MG
     Dates: start: 2022
  6. ELETRIPTAN [Concomitant]
     Active Substance: ELETRIPTAN
     Dosage: 40 MG AS NEEDED
  7. CHOLECALCIFEROL [Concomitant]
     Active Substance: CHOLECALCIFEROL
     Dosage: 10,000 IU ONCE A WEEK
  8. M CAL CITRATE [Concomitant]
     Dosage: 500 MG ONCE A DAY
  9. M CAL CITRATE [Concomitant]
     Dosage: UNK

REACTIONS (2)
  - Melaena [Unknown]
  - Ill-defined disorder [Unknown]

NARRATIVE: CASE EVENT DATE: 20250901
